FAERS Safety Report 21145503 (Version 4)
Quarter: 2022Q3

REPORT INFORMATION
  Report Type: Spontaneous
  Country: CA (occurrence: CA)
  Receive Date: 20220729
  Receipt Date: 20220908
  Transmission Date: 20221027
  Serious: Yes (Other)
  Sender: FDA-Public Use
  Company Number: CA-CELLTRION INC.-2022CA010619

PATIENT

DRUGS (3)
  1. INFLECTRA [Suspect]
     Active Substance: INFLIXIMAB-DYYB
     Indication: Crohn^s disease
     Dosage: 600 MG,INDUCTION DOSES AT WEEK 0, 2 AND 6, THEN EVERY 4 WEEKS - NOT YET STARTED
     Route: 042
  2. INFLECTRA [Suspect]
     Active Substance: INFLIXIMAB-DYYB
     Dosage: 600 MG, AT WEEK 0, 2 AND 6, THEN EVERY 4 WEEKS.NOT FULL DOSE RECEIVED, AFTER 15 MINUTES - REACTION
     Route: 042
     Dates: start: 20220714, end: 20220714
  3. INFLECTRA [Suspect]
     Active Substance: INFLIXIMAB-DYYB
     Dosage: 600 MG, AT WEEK 0, 2 AND 6, THEN EVERY 4 WEEKS.NOT FULL DOSE RECEIVED, AFTER 15 MINUTES - REACTION
     Route: 042
     Dates: start: 20220714, end: 20220714

REACTIONS (8)
  - Tongue disorder [Unknown]
  - Hypoaesthesia oral [Unknown]
  - Paraesthesia oral [Unknown]
  - Pharyngeal paraesthesia [Unknown]
  - Anxiety [Unknown]
  - Hypersensitivity [Unknown]
  - Off label use [Unknown]
  - Off label use [Unknown]

NARRATIVE: CASE EVENT DATE: 20220714
